FAERS Safety Report 25390088 (Version 4)
Quarter: 2025Q3

REPORT INFORMATION
  Report Type: Spontaneous
  Country: US (occurrence: US)
  Receive Date: 20250603
  Receipt Date: 20250926
  Transmission Date: 20251021
  Serious: No
  Sender: PFIZER
  Company Number: US-PFIZER INC-202500111513

PATIENT
  Age: 13 Year
  Sex: Female
  Weight: 46.7 kg

DRUGS (8)
  1. GENOTROPIN [Suspect]
     Active Substance: SOMATROPIN
     Indication: Turner^s syndrome
     Dates: start: 20240830, end: 202409
  2. GENOTROPIN [Suspect]
     Active Substance: SOMATROPIN
     Indication: Mosaicism
     Dosage: 2.4 MG, DAILY
     Route: 058
     Dates: start: 202409
  3. GENOTROPIN [Suspect]
     Active Substance: SOMATROPIN
     Indication: Hypopituitarism
  4. GENOTROPIN [Suspect]
     Active Substance: SOMATROPIN
     Indication: Growth hormone deficiency
     Route: 058
  5. GENOTROPIN [Suspect]
     Active Substance: SOMATROPIN
     Indication: Primary hypogonadism
     Route: 058
     Dates: start: 202409
  6. GENOTROPIN [Suspect]
     Active Substance: SOMATROPIN
     Indication: Short stature
  7. GENOTROPIN [Suspect]
     Active Substance: SOMATROPIN
     Indication: Delayed puberty
  8. VIVELLE-DOT [Concomitant]
     Active Substance: ESTRADIOL

REACTIONS (4)
  - Device use error [Unknown]
  - Device breakage [Unknown]
  - Device material issue [Unknown]
  - Drug dose omission by device [Unknown]

NARRATIVE: CASE EVENT DATE: 20250528
